FAERS Safety Report 7161312-4 (Version None)
Quarter: 2010Q4

REPORT INFORMATION
  Report Type: 
  Country: None (occurrence: None)
  Receive Date: 20101210
  Receipt Date: 20101210
  Transmission Date: 20110411
  Serious: Yes (Life-Threatening, Hospitalization)
  Sender: FDA-Public Use
  Company Number: None

PATIENT
  Age: 82 Year
  Sex: Female
  Weight: 106 kg

DRUGS (1)
  1. MIRTAZAPINE 30MG OR 15MG UNKNOWN [Suspect]
     Indication: DEPRESSION
     Dosage: 30MG QHS ORAL
     Route: 048
     Dates: start: 20101103, end: 20101110

REACTIONS (5)
  - DIZZINESS [None]
  - FAECAL INCONTINENCE [None]
  - FALL [None]
  - OEDEMA PERIPHERAL [None]
  - TORSADE DE POINTES [None]
